FAERS Safety Report 4838041-2 (Version None)
Quarter: 2005Q4

REPORT INFORMATION
  Report Type: 
  Country: None (occurrence: None)
  Receive Date: 20051128
  Receipt Date: 20051114
  Transmission Date: 20060501
  Serious: Yes (Other)
  Sender: FDA-Public Use
  Company Number: US-AVENTIS-200514430EU

PATIENT
  Age: 85 Year
  Sex: Female

DRUGS (3)
  1. ENOXAPARIN [Suspect]
     Route: 058
  2. WARFARIN SODIUM [Concomitant]
     Indication: ATRIAL FIBRILLATION
     Route: 048
  3. WARFARIN SODIUM [Concomitant]
     Indication: CARDIAC VALVE DISEASE
     Route: 048

REACTIONS (4)
  - BLOOD PRESSURE DIASTOLIC DECREASED [None]
  - BLOOD PRESSURE SYSTOLIC INCREASED [None]
  - EXTRADURAL HAEMATOMA [None]
  - URINARY RETENTION [None]
